FAERS Safety Report 7689622-2 (Version None)
Quarter: 2011Q3

REPORT INFORMATION
  Report Type: 
  Country: None (occurrence: None)
  Receive Date: 20110817
  Receipt Date: 20110808
  Transmission Date: 20111222
  Serious: Yes (Hospitalization)
  Sender: FDA-Public Use
  Company Number: US-ASTRAZENECA-2011SE47498

PATIENT
  Age: 50 Year
  Sex: Female

DRUGS (3)
  1. CRESTOR [Concomitant]
  2. NEXIUM [Suspect]
     Route: 048
  3. SYMBICORT [Suspect]
     Route: 055

REACTIONS (2)
  - PNEUMONIA [None]
  - DRY MOUTH [None]
